FAERS Safety Report 9531790 (Version 2)
Quarter: 2013Q4

REPORT INFORMATION
  Report Type: Spontaneous
  Country: US (occurrence: US)
  Receive Date: 20130918
  Receipt Date: 20131111
  Transmission Date: 20140711
  Serious: No
  Sender: FDA-Public Use
  Company Number: US-PFIZER INC-2013265764

PATIENT
  Age: 73 Year
  Sex: Female

DRUGS (2)
  1. AROMASIN [Suspect]
     Indication: BREAST CANCER FEMALE
     Dosage: 25 MG, 1X/DAY
     Dates: start: 20120914
  2. AFINITOR [Suspect]
     Dosage: UNK

REACTIONS (3)
  - Disease progression [Unknown]
  - Breast cancer female [Unknown]
  - Stomatitis [Unknown]
